FAERS Safety Report 7106572-0 (Version None)
Quarter: 2010Q4

REPORT INFORMATION
  Report Type: 
  Country: None (occurrence: None)
  Receive Date: 20101116
  Receipt Date: 20101108
  Transmission Date: 20110411
  Serious: Yes (Hospitalization, Other)
  Sender: FDA-Public Use
  Company Number: US-ABBOTT-10P-163-0682686-00

PATIENT
  Sex: Male
  Weight: 77.18 kg

DRUGS (17)
  1. HUMIRA [Suspect]
     Indication: RHEUMATOID ARTHRITIS
     Dates: start: 20040101, end: 20090801
  2. HUMIRA [Suspect]
     Dates: start: 20100622
  3. CELEBREX [Concomitant]
     Indication: RHEUMATOID ARTHRITIS
  4. DETROL LA [Concomitant]
     Indication: URINARY TRACT DISORDER
  5. FLOMAX [Concomitant]
     Indication: URINARY TRACT DISORDER
  6. FOLIC ACID [Concomitant]
     Indication: VITAMIN SUPPLEMENTATION
  7. MECLAZINE [Concomitant]
     Indication: VERTIGO
  8. METHOTREXATE [Concomitant]
     Indication: RHEUMATOID ARTHRITIS
     Dosage: 6 TABLETS X 2.5MG WEEKLY
  9. PREDNISONE [Concomitant]
     Indication: RHEUMATOID ARTHRITIS
  10. PREVACID [Concomitant]
     Indication: GASTRIC DISORDER
  11. PREVACID [Concomitant]
     Indication: PROPHYLAXIS
  12. SLO FE [Concomitant]
     Indication: MINERAL SUPPLEMENTATION
  13. CITRACAL [Concomitant]
     Indication: MINERAL SUPPLEMENTATION
  14. COD LIVER OIL [Concomitant]
     Indication: VITAMIN SUPPLEMENTATION
  15. SENOKOT [Concomitant]
     Indication: CONSTIPATION
  16. TYLENOL [Concomitant]
     Indication: RHEUMATOID ARTHRITIS
  17. BOOST [Concomitant]
     Indication: SUPPLEMENTATION THERAPY

REACTIONS (9)
  - ARTHRITIS [None]
  - DEVICE RELATED INFECTION [None]
  - HYPERTENSION [None]
  - INTERVERTEBRAL DISC DEGENERATION [None]
  - NASAL SEPTUM DEVIATION [None]
  - PARANASAL SINUS HYPERSECRETION [None]
  - PERIPHERAL ARTERY ANEURYSM [None]
  - PRODUCTIVE COUGH [None]
  - SINUS DISORDER [None]
